FAERS Safety Report 21723493 (Version 2)
Quarter: 2022Q4

REPORT INFORMATION
  Report Type: Spontaneous
  Country: JP (occurrence: JP)
  Receive Date: 20221213
  Receipt Date: 20221227
  Transmission Date: 20230113
  Serious: Yes (Hospitalization)
  Sender: FDA-Public Use
  Company Number: JP-TEVA-2022-JP-2835100

PATIENT
  Age: 42 Year
  Sex: Female

DRUGS (2)
  1. PREDNISOLONE [Suspect]
     Active Substance: PREDNISOLONE
     Indication: Takayasu^s arteritis
     Dosage: 5 MILLIGRAM DAILY;
     Route: 048
  2. ASPIRIN [Concomitant]
     Active Substance: ASPIRIN
     Indication: Takayasu^s arteritis
     Dosage: 100 MILLIGRAM DAILY; ADDITIONAL INFO: ACTION TAKEN: THE THERAPY WAS CONTINUED AND EVENTUALLY WITHDRA
     Route: 065

REACTIONS (3)
  - Carotid artery thrombosis [Recovered/Resolved]
  - Ischaemic stroke [Recovering/Resolving]
  - Hemiplegia [Recovered/Resolved]
